FAERS Safety Report 8242308 (Version 3)
Quarter: 2016Q1

REPORT INFORMATION
  Report Type: Spontaneous
  Country: JP (occurrence: JP)
  Receive Date: 20111114
  Receipt Date: 20160112
  Transmission Date: 20160526
  Serious: Yes (Other)
  Sender: FDA-Public Use
  Company Number: JP-BRISTOL-MYERS SQUIBB COMPANY-16222382

PATIENT
  Age: 0 Day
  Sex: Female
  Weight: 3.34 kg

DRUGS (1)
  1. ABILIFY [Suspect]
     Active Substance: ARIPIPRAZOLE
     Indication: PRODUCT USED FOR UNKNOWN INDICATION
     Dosage: 6 MG, UNK
     Route: 064
     Dates: end: 20110804

REACTIONS (2)
  - Foetal exposure during pregnancy [Unknown]
  - Congenital laryngeal stridor [Unknown]

NARRATIVE: CASE EVENT DATE: 20110804
